FAERS Safety Report 21419805 (Version 1)
Quarter: 2022Q4

REPORT INFORMATION
  Report Type: Spontaneous
  Country: US (occurrence: None)
  Receive Date: 20221005
  Receipt Date: 20221005
  Transmission Date: 20230113
  Serious: No
  Sender: FDA-Public Use
  Company Number: None

PATIENT
  Age: 66 Year
  Sex: Male

DRUGS (4)
  1. SKYRIZI [Suspect]
     Active Substance: RISANKIZUMAB-RZAA
     Indication: Psoriasis
     Dosage: FREQUENCY : AS DIRECTED;?
     Route: 058
     Dates: start: 202201
  2. SKYRIZI [Suspect]
     Active Substance: RISANKIZUMAB-RZAA
     Indication: Eczema nummular
  3. ENALAPRIL [Suspect]
     Active Substance: ENALAPRIL
     Indication: Psoriasis
  4. ENALAPRIL [Suspect]
     Active Substance: ENALAPRIL
     Indication: Eczema nummular

REACTIONS (1)
  - Drug hypersensitivity [None]
